APPROVED DRUG PRODUCT: DEPAKOTE ER
Active Ingredient: DIVALPROEX SODIUM
Strength: EQ 500MG VALPROIC ACID
Dosage Form/Route: TABLET, EXTENDED RELEASE;ORAL
Application: N021168 | Product #001 | TE Code: AB
Applicant: ABBVIE INC
Approved: Aug 4, 2000 | RLD: Yes | RS: No | Type: RX